FAERS Safety Report 24243914 (Version 1)
Quarter: 2024Q3

REPORT INFORMATION
  Report Type: Spontaneous
  Country: US (occurrence: None)
  Receive Date: 20240823
  Receipt Date: 20240823
  Transmission Date: 20241017
  Serious: Yes (Hospitalization)
  Sender: Public
  Company Number: None

PATIENT
  Age: 68 Year
  Sex: Male
  Weight: 68.4 kg

DRUGS (2)
  1. LEQEMBI [Suspect]
     Active Substance: LECANEMAB-IRMB
     Indication: Cognitive disorder
     Dosage: 700 MG Q 2 WEEKS INTRAVENOUS DRIP
     Route: 041
     Dates: start: 20240613, end: 20240730
  2. LEQEMBI [Concomitant]
     Active Substance: LECANEMAB-IRMB
     Dates: start: 20240613, end: 20240730

REACTIONS (2)
  - Brain oedema [None]
  - Seizure [None]

NARRATIVE: CASE EVENT DATE: 20240814
